FAERS Safety Report 9938630 (Version 2)
Quarter: 2014Q1

REPORT INFORMATION
  Report Type: Spontaneous
  Country: CA (occurrence: CA)
  Receive Date: 20140303
  Receipt Date: 20140303
  Transmission Date: 20141002
  Serious: Yes (Life-Threatening, Hospitalization)
  Sender: FDA-Public Use
  Company Number: CA-JNJFOC-20130913201

PATIENT
  Age: 55 Year
  Sex: Female

DRUGS (6)
  1. RISPERIDONE [Suspect]
     Indication: DEMENTIA
     Route: 048
     Dates: start: 199909
  2. RISPERIDONE [Suspect]
     Indication: DEMENTIA
     Route: 048
  3. RISPERIDONE [Suspect]
     Indication: AGITATION
     Route: 048
  4. RISPERIDONE [Suspect]
     Indication: AGITATION
     Route: 048
     Dates: start: 199909
  5. MODURET [Concomitant]
     Dosage: INITIATED GREATER THAN 6 MONTHS BEFORE
     Route: 065
  6. SALAZOPYRIN [Concomitant]
     Dosage: INITIATED GREATER THAN 5 YEARS BEFORE
     Route: 048

REACTIONS (5)
  - Stupor [Recovered/Resolved]
  - Neuroleptic malignant syndrome [Recovered/Resolved]
  - Asthenia [Recovered/Resolved]
  - Pyrexia [Recovered/Resolved]
  - Tachypnoea [Recovered/Resolved]
